FAERS Safety Report 10223241 (Version 2)
Quarter: 2014Q2

REPORT INFORMATION
  Report Type: Spontaneous
  Country: US (occurrence: None)
  Receive Date: 20140605
  Receipt Date: 20140623
  Transmission Date: 20141212
  Serious: Yes (Other)
  Sender: FDA-Public Use
  Company Number: UNT-2014-001117

PATIENT
  Age: 66 Year
  Sex: Female
  Weight: 106.5 kg

DRUGS (2)
  1. REMODULIN [Suspect]
     Indication: PULMONARY ARTERIAL HYPERTENSION
     Dosage: 0.078 UG/KG/MIN, CONTINUING, SUBCUTANEOUS
     Route: 058
     Dates: start: 20120111
  2. TRACLEER (BOSENTAN) [Concomitant]

REACTIONS (4)
  - Pseudomonas infection [None]
  - Infusion site infection [None]
  - Infection [None]
  - Infusion site pruritus [None]
